FAERS Safety Report 6796118-9 (Version None)
Quarter: 2010Q2

REPORT INFORMATION
  Report Type: 
  Country: None (occurrence: None)
  Receive Date: 20100625
  Receipt Date: 20100614
  Transmission Date: 20101027
  Serious: Yes (Other)
  Sender: FDA-Public Use
  Company Number: BR-GENENTECH-295041

PATIENT
  Sex: Female
  Weight: 58 kg

DRUGS (4)
  1. RITUXIMAB [Suspect]
     Indication: RHEUMATOID ARTHRITIS
     Dosage: 1000 MG, UNK
     Route: 042
     Dates: start: 20090201, end: 20091029
  2. RITUXIMAB [Suspect]
     Indication: SYSTEMIC LUPUS ERYTHEMATOSUS
  3. VITAMIN TAB [Concomitant]
     Indication: DRUG USE FOR UNKNOWN INDICATION
     Dosage: UNK
  4. PLAQUINOL [Concomitant]
     Indication: SYSTEMIC LUPUS ERYTHEMATOSUS
     Dosage: UNK

REACTIONS (12)
  - ALOPECIA [None]
  - ANAPHYLACTIC SHOCK [None]
  - ARTHRALGIA [None]
  - BONE PAIN [None]
  - HAIR COLOUR CHANGES [None]
  - HEADACHE [None]
  - HYPOTENSION [None]
  - HYPOTHYROIDISM [None]
  - PAIN IN EXTREMITY [None]
  - PREMATURE MENOPAUSE [None]
  - THERAPEUTIC RESPONSE DECREASED [None]
  - WEIGHT INCREASED [None]
